FAERS Safety Report 25791708 (Version 1)
Quarter: 2025Q3

REPORT INFORMATION
  Report Type: Spontaneous
  Country: US (occurrence: US)
  Receive Date: 20250911
  Receipt Date: 20250911
  Transmission Date: 20251020
  Serious: No
  Sender: BAYER HEALTHCARE LLC
  Company Number: US-BAYER-2025A119768

PATIENT
  Age: 84 Year
  Sex: Female

DRUGS (13)
  1. CLARITIN [Suspect]
     Active Substance: LORATADINE
     Indication: Nasopharyngitis
     Dosage: 1 DF, HS
     Route: 048
     Dates: start: 20250905, end: 20250908
  2. CLARITIN [Suspect]
     Active Substance: LORATADINE
     Indication: Hypersensitivity
  3. CLARITIN [Suspect]
     Active Substance: LORATADINE
     Indication: Rhinorrhoea
  4. FAMOTIDINE [Concomitant]
     Active Substance: FAMOTIDINE
     Route: 065
  5. JARDIANCE [Concomitant]
     Active Substance: EMPAGLIFLOZIN
     Route: 065
  6. LOSARTAN [Concomitant]
     Active Substance: LOSARTAN
     Route: 065
  7. METOPROLOL [Concomitant]
     Active Substance: METOPROLOL
     Route: 065
  8. ATORVASTATIN [Concomitant]
     Active Substance: ATORVASTATIN
     Route: 065
  9. GABAPENTIN [Concomitant]
     Active Substance: GABAPENTIN
     Route: 065
  10. SPIRONOLACTONE [Concomitant]
     Active Substance: SPIRONOLACTONE
     Route: 065
  11. SPIRIVA [Concomitant]
     Active Substance: TIOTROPIUM BROMIDE MONOHYDRATE
     Route: 065
  12. ALLOPURINOL [Concomitant]
     Active Substance: ALLOPURINOL
     Route: 065
  13. ELIQUIS [Concomitant]
     Active Substance: APIXABAN
     Route: 065

REACTIONS (1)
  - Drug ineffective [Not Recovered/Not Resolved]

NARRATIVE: CASE EVENT DATE: 20250905
